FAERS Safety Report 8404245-5 (Version None)
Quarter: 2012Q2

REPORT INFORMATION
  Report Type: 
  Country: None (occurrence: None)
  Receive Date: 20120601
  Receipt Date: 20120529
  Transmission Date: 20120825
  Serious: Yes (Hospitalization)
  Sender: FDA-Public Use
  Company Number: JP-AMGEN-JPNCT2012030664

PATIENT
  Age: 40 Year
  Sex: Female
  Weight: 63 kg

DRUGS (13)
  1. CALCICHEW D3 [Concomitant]
     Dosage: UNK UNK, QD
     Route: 048
     Dates: start: 20110803
  2. CABERGOLINE [Concomitant]
     Indication: HYPERPROLACTINAEMIA
     Dosage: 0.25MG/WEEK
     Route: 048
     Dates: start: 20110615
  3. PURSENNID [Concomitant]
     Indication: CONSTIPATION
     Dosage: AS NEEDED BEFORE BEDTIME
     Route: 048
     Dates: start: 20111025
  4. UREPEARL [Concomitant]
     Indication: ECZEMA
     Dosage: ADEQUATE
     Route: 048
     Dates: start: 20090101
  5. BLINDED DENOSUMAB [Suspect]
     Indication: RHEUMATOID ARTHRITIS
     Dosage: UNK
     Route: 058
     Dates: start: 20110827
  6. BLINDED PLACEBO [Suspect]
     Indication: RHEUMATOID ARTHRITIS
     Dosage: UNK
     Route: 058
     Dates: start: 20110827
  7. VOLLEY [Concomitant]
     Indication: INFECTION
     Dosage: ADEQUATE
     Route: 048
     Dates: start: 20090101
  8. LOXONIN [Concomitant]
     Indication: HEADACHE
     Dosage: AS NEEDED
     Route: 048
  9. METHOTREXATE [Concomitant]
     Indication: RHEUMATOID ARTHRITIS
     Dosage: 6MG/WEEK
     Route: 048
     Dates: start: 20110904
  10. NEW CALCICHEW D3 [Concomitant]
     Indication: PRODUCT USED FOR UNKNOWN INDICATION
     Dosage: UNK UNK, QD
     Route: 048
     Dates: start: 20110803
  11. FOLIAMIN [Concomitant]
     Indication: PROPHYLAXIS
     Dosage: 5MG/WEEK
     Route: 048
     Dates: start: 20110928
  12. ATOLANT [Concomitant]
     Indication: INFECTION
     Dosage: ADEQUATE
     Route: 048
     Dates: start: 20090101
  13. LOCOID [Concomitant]
     Indication: ECZEMA
     Dosage: ADEQUATE
     Route: 048
     Dates: start: 20090101

REACTIONS (1)
  - INTERVERTEBRAL DISC PROTRUSION [None]
